FAERS Safety Report 18601859 (Version 1)
Quarter: 2020Q4

REPORT INFORMATION
  Report Type: Report from Study
  Country: CN (occurrence: CN)
  Receive Date: 20201210
  Receipt Date: 20201210
  Transmission Date: 20210114
  Serious: Yes (Hospitalization)
  Sender: FDA-Public Use
  Company Number: CN-BAYER-2020-268041

PATIENT
  Sex: Male

DRUGS (1)
  1. STIVARGA [Suspect]
     Active Substance: REGORAFENIB
     Indication: HEPATOCELLULAR CARCINOMA
     Dosage: 120 MG, QD
     Route: 048
     Dates: start: 20200901, end: 20201120

REACTIONS (4)
  - Hepatic function abnormal [Recovering/Resolving]
  - Off label use [None]
  - Tri-iodothyronine free decreased [Not Recovered/Not Resolved]
  - Thyroxine free decreased [Not Recovered/Not Resolved]

NARRATIVE: CASE EVENT DATE: 20200901
